FAERS Safety Report 17316218 (Version 2)
Quarter: 2020Q1

REPORT INFORMATION
  Report Type: Spontaneous
  Country: US (occurrence: US)
  Receive Date: 20200124
  Receipt Date: 20200131
  Transmission Date: 20200409
  Serious: Yes (Other)
  Sender: FDA-Public Use
  Company Number: US-SUNOVION-2020SUN000217

PATIENT
  Sex: Male

DRUGS (1)
  1. LATUDA [Suspect]
     Active Substance: LURASIDONE HYDROCHLORIDE
     Indication: SCHIZOPHRENIA
     Dosage: 160 MG
     Route: 048

REACTIONS (5)
  - Extrapyramidal disorder [Unknown]
  - Akathisia [Unknown]
  - Drug ineffective [Unknown]
  - Suicidal ideation [Unknown]
  - Delusion [Unknown]
